FAERS Safety Report 8186797-6 (Version None)
Quarter: 2012Q1

REPORT INFORMATION
  Report Type: 
  Country: None (occurrence: None)
  Receive Date: 20120306
  Receipt Date: 20120306
  Transmission Date: 20120608
  Serious: Yes (Hospitalization)
  Sender: FDA-Public Use
  Company Number: None

PATIENT
  Sex: Female
  Weight: 68.038 kg

DRUGS (1)
  1. NITROFURANTOIN (MONOHYDRATE/MACROCRYSTALS) [Suspect]
     Indication: CYSTITIS
     Dosage: 100 MG C
     Route: 048
     Dates: start: 20101122, end: 20101128

REACTIONS (2)
  - PYREXIA [None]
  - DRUG HYPERSENSITIVITY [None]
